FAERS Safety Report 23400102 (Version 2)
Quarter: 2024Q1

REPORT INFORMATION
  Report Type: Spontaneous
  Country: JP (occurrence: JP)
  Receive Date: 20240114
  Receipt Date: 20240308
  Transmission Date: 20240410
  Serious: Yes (Other)
  Sender: FDA-Public Use
  Company Number: JP-TEVA-VS-3136368

PATIENT
  Age: 49 Year
  Sex: Male

DRUGS (14)
  1. IRINOTECAN [Suspect]
     Active Substance: IRINOTECAN
     Indication: Colon cancer
     Dosage: ADMINISTERED ON DAY 1 A 21-DAY CYCLE
     Route: 065
  2. BEVACIZUMAB [Suspect]
     Active Substance: BEVACIZUMAB
     Indication: Colon cancer
     Dosage: ADMINISTERED ON DAY 1 A 21-DAY CYCLE
     Route: 065
  3. GIMERACIL\OTERACIL\TEGAFUR [Suspect]
     Active Substance: GIMERACIL\OTERACIL POTASSIUM\TEGAFUR
     Indication: Colon cancer
     Dosage: ADMINISTERED ON DAYS 1-14 OF A A 21-DAY CYCLE??GIMERACIL/OTERACIL/TEGAFUR
     Route: 065
  4. DEXAMETHASONE [Suspect]
     Active Substance: DEXAMETHASONE
     Indication: Nausea
     Dosage: ADMINISTERED ON DAY 1 DURING THE CHEMOTHERAPY CYCLE
     Route: 065
  5. DEXAMETHASONE [Suspect]
     Active Substance: DEXAMETHASONE
     Indication: Nausea
     Dosage: ADMINISTERED ON DAYS 2-4 DURING THE CHEMOTHERAPY CYCLE
     Route: 048
  6. MAGNESIUM OXIDE [Concomitant]
     Active Substance: MAGNESIUM OXIDE
     Indication: Product used for unknown indication
     Route: 065
  7. METHYLCOBALAMIN [Concomitant]
     Active Substance: METHYLCOBALAMIN
     Indication: Product used for unknown indication
     Route: 065
  8. AMBROXOL [Concomitant]
     Active Substance: AMBROXOL
     Indication: Product used for unknown indication
     Route: 065
  9. CHLORPROMAZINE [Suspect]
     Active Substance: CHLORPROMAZINE
     Indication: Hiccups
     Route: 065
  10. PALONOSETRON [Suspect]
     Active Substance: PALONOSETRON
     Indication: Nausea
     Dosage: ADMINISTERED ON DAY 1 DURING THE CHEMOTHERAPY CYCLE
     Route: 065
  11. PYRIDOXAL [Concomitant]
     Active Substance: PYRIDOXAL
     Indication: Product used for unknown indication
     Route: 065
  12. AMLODIPINE [Concomitant]
     Active Substance: AMLODIPINE BESYLATE
     Indication: Hypertension
     Route: 065
  13. SHAKUYAKUKANZOTO [Suspect]
     Active Substance: HERBALS
     Indication: Hiccups
     Route: 065
  14. VONOPRAZAN [Concomitant]
     Active Substance: VONOPRAZAN
     Indication: Product used for unknown indication
     Route: 065

REACTIONS (4)
  - Nausea [Recovering/Resolving]
  - Vomiting [Unknown]
  - Hiccups [Recovering/Resolving]
  - Drug ineffective [Unknown]
